FAERS Safety Report 6961566-0 (Version None)
Quarter: 2010Q3

REPORT INFORMATION
  Report Type: 
  Country: None (occurrence: None)
  Receive Date: 20100901
  Receipt Date: 20100822
  Transmission Date: 20110219
  Serious: Yes (Hospitalization)
  Sender: FDA-Public Use
  Company Number: US-BAXTER-2010BH017194

PATIENT
  Age: 30 Year
  Sex: Female
  Weight: 71 kg

DRUGS (2)
  1. DIANEAL [Suspect]
     Indication: PERITONEAL DIALYSIS
     Route: 033
     Dates: end: 20100601
  2. DIANEAL [Suspect]
     Route: 033
     Dates: start: 20100101

REACTIONS (3)
  - ANAEMIA [None]
  - CHILLS [None]
  - PYREXIA [None]
